FAERS Safety Report 10189716 (Version 2)
Quarter: 2014Q2

REPORT INFORMATION
  Report Type: Report from Study
  Country: NL (occurrence: NL)
  Receive Date: 20140522
  Receipt Date: 20140522
  Transmission Date: 20141212
  Serious: Yes (Death, Hospitalization, Other)
  Sender: FDA-Public Use
  Company Number: NL-CELGENEUS-114-21660-14034154

PATIENT
  Age: 60 Year
  Sex: Male
  Weight: 86 kg

DRUGS (12)
  1. ABRAXANE [Suspect]
     Indication: ADENOCARCINOMA PANCREAS
     Dosage: 275 MILLIGRAM
     Route: 065
     Dates: start: 20130107
  2. ABRAXANE [Suspect]
     Route: 065
     Dates: start: 20140325
  3. ABRAXANE [Suspect]
     Route: 065
  4. ABRAXANE [Suspect]
     Route: 065
     Dates: start: 20140325, end: 20140328
  5. GEMCITABINE [Suspect]
     Indication: ADENOCARCINOMA PANCREAS
     Route: 065
  6. GEMCITABINE [Suspect]
     Route: 065
     Dates: start: 20140107
  7. GEMCITABINE [Suspect]
     Route: 065
     Dates: start: 20140325, end: 20140328
  8. FENTANYL [Concomitant]
     Indication: PAIN
     Dosage: 16.6667 MICROGRAM
     Route: 061
  9. FRAXODI [Concomitant]
     Indication: THROMBOSIS
     Route: 058
     Dates: start: 20140110
  10. IRBESARTAN [Concomitant]
     Indication: HYPERTENSION
     Dosage: 150 MILLIGRAM
     Route: 048
  11. HYDROCHLOROTHIAZIDE [Concomitant]
     Indication: HYPERTENSION
     Dosage: 12.5 MILLIGRAM
     Route: 048
  12. OMEPRAZOLE [Concomitant]
     Indication: DYSPEPSIA
     Dosage: 20 MILLIGRAM
     Route: 048
     Dates: start: 2014

REACTIONS (6)
  - Adenocarcinoma pancreas [Fatal]
  - Abdominal pain [Recovered/Resolved]
  - Vomiting [Recovered/Resolved]
  - Hypersensitivity [Unknown]
  - Weight decreased [Unknown]
  - Drug dose omission [Unknown]
